FAERS Safety Report 22055405 (Version 2)
Quarter: 2023Q1

REPORT INFORMATION
  Report Type: Spontaneous
  Country: DE (occurrence: DE)
  Receive Date: 20230302
  Receipt Date: 20230310
  Transmission Date: 20230417
  Serious: Yes (Other)
  Sender: FDA-Public Use
  Company Number: DE-002147023-NVSC2021DE028485

PATIENT
  Age: 66 Year
  Sex: Female
  Weight: 67 kg

DRUGS (15)
  1. PALBOCICLIB [Suspect]
     Active Substance: PALBOCICLIB
     Indication: Hormone receptor positive breast cancer
     Dosage: 125 MG, 1X/DAY
     Route: 048
     Dates: start: 20161012, end: 20181107
  2. LETROZOLE [Suspect]
     Active Substance: LETROZOLE
     Indication: Hormone receptor positive breast cancer
     Dosage: 2.5 MG, 1X/DAY
     Route: 048
     Dates: start: 20161012, end: 20181114
  3. XARELTO [Concomitant]
     Active Substance: RIVAROXABAN
     Indication: Prophylaxis
     Dosage: UNK
     Route: 048
     Dates: start: 20170103
  4. SODIUM PERCHLORATE [Concomitant]
     Active Substance: SODIUM PERCHLORATE
     Indication: Prophylaxis
     Dosage: UNK
     Route: 048
     Dates: start: 20170404
  5. VITAMIN B12 LOGES [Concomitant]
     Indication: Nasopharyngitis
     Dosage: UNK
     Route: 048
     Dates: start: 20170217
  6. METFORMIN [Concomitant]
     Active Substance: METFORMIN HYDROCHLORIDE
     Indication: Diabetes mellitus
     Dosage: UNK
     Route: 048
     Dates: start: 2005
  7. VITAMIN D NOS [Concomitant]
     Active Substance: VITAMIN D NOS
     Indication: Prophylaxis
     Dosage: UNK
     Route: 048
     Dates: start: 2005
  8. VITAMIN D NOS [Concomitant]
     Active Substance: VITAMIN D NOS
     Dosage: UNK
     Route: 065
     Dates: start: 20180312
  9. FLUTICASONE PROPIONATE\SALMETEROL XINAFOATE [Concomitant]
     Active Substance: FLUTICASONE PROPIONATE\SALMETEROL XINAFOATE
     Indication: Asthma
     Dosage: UNK
     Route: 055
     Dates: start: 1989
  10. MAGNESIUM [Concomitant]
     Active Substance: MAGNESIUM
     Indication: Muscle spasms
     Dosage: UNK
     Route: 048
     Dates: start: 20161124
  11. LEVOCETIRIZINE [Concomitant]
     Active Substance: LEVOCETIRIZINE
     Indication: Product used for unknown indication
     Dosage: UNK
     Route: 065
  12. ASCORBIC ACID [Concomitant]
     Active Substance: ASCORBIC ACID
     Indication: Prophylaxis
     Dosage: UNK
     Route: 048
     Dates: start: 2005
  13. ANGINETTEN [Concomitant]
     Indication: Nasopharyngitis
     Dosage: UNK
     Route: 048
     Dates: start: 20170220
  14. LEVOTHYROXINE SODIUM [Concomitant]
     Active Substance: LEVOTHYROXINE SODIUM
     Indication: Basedow^s disease
     Dosage: UNK
     Route: 048
     Dates: start: 2005
  15. ZOMETA [Concomitant]
     Active Substance: ZOLEDRONIC ACID
     Indication: Prophylaxis
     Dosage: UNK
     Route: 042
     Dates: start: 20160609

REACTIONS (2)
  - Deep vein thrombosis [Recovered/Resolved]
  - Pulmonary embolism [Recovered/Resolved]

NARRATIVE: CASE EVENT DATE: 20161209
